FAERS Safety Report 17490188 (Version 1)
Quarter: 2020Q1

REPORT INFORMATION
  Report Type: Spontaneous
  Country: US (occurrence: US)
  Receive Date: 20200303
  Receipt Date: 20200303
  Transmission Date: 20200409
  Serious: Yes (Other)
  Sender: FDA-Public Use
  Company Number: US-AKORN PHARMACEUTICALS-2019AKN02022

PATIENT
  Age: 25 Year
  Sex: Female
  Weight: 77.1 kg

DRUGS (2)
  1. MYORISAN [Suspect]
     Active Substance: ISOTRETINOIN
     Indication: ACNE
     Dosage: 20 MG, 2X/DAY
     Dates: start: 20190403, end: 2019
  2. MYORISAN [Suspect]
     Active Substance: ISOTRETINOIN
     Indication: ACNE
     Dosage: UNK
     Dates: start: 20190716, end: 20190816

REACTIONS (5)
  - High density lipoprotein decreased [Recovered/Resolved]
  - Blood cholesterol increased [Recovered/Resolved]
  - Blood triglycerides increased [Recovered/Resolved]
  - Total cholesterol/HDL ratio increased [Recovered/Resolved]
  - Non-high-density lipoprotein cholesterol [Recovered/Resolved]

NARRATIVE: CASE EVENT DATE: 20190503
